FAERS Safety Report 10687361 (Version 2)
Quarter: 2015Q1

REPORT INFORMATION
  Report Type: Spontaneous
  Country: NO (occurrence: NO)
  Receive Date: 20150102
  Receipt Date: 20150102
  Transmission Date: 20150720
  Serious: Yes (Hospitalization, Other)
  Sender: FDA-Public Use
  Company Number: PHHY2014NO153111

PATIENT
  Age: 52 Year
  Sex: Female

DRUGS (2)
  1. EXJADE [Suspect]
     Active Substance: DEFERASIROX
     Indication: HAEMOSIDEROSIS
     Dosage: 500 MG, QD
     Route: 065
     Dates: start: 20141021, end: 20141119
  2. EXJADE [Suspect]
     Active Substance: DEFERASIROX
     Indication: SIDEROBLASTIC ANAEMIA
     Dosage: 500 MG, QD
     Route: 048
     Dates: start: 20130816, end: 20140207

REACTIONS (3)
  - Haemolysis [Recovered/Resolved]
  - Anaemia [Recovering/Resolving]
  - Haemoglobin decreased [Unknown]

NARRATIVE: CASE EVENT DATE: 20141021
